FAERS Safety Report 6917285-X (Version None)
Quarter: 2010Q3

REPORT INFORMATION
  Report Type: 
  Country: None (occurrence: None)
  Receive Date: 20100805
  Receipt Date: 20100721
  Transmission Date: 20110219
  Serious: Yes (Death, Hospitalization)
  Sender: FDA-Public Use
  Company Number: AMAG201000305

PATIENT
  Age: 86 Year
  Sex: Male
  Weight: 78.9 kg

DRUGS (15)
  1. FERAHEME [Suspect]
     Indication: ANAEMIA OF CHRONIC DISEASE
     Dosage: SEE IMAGE
     Route: 042
     Dates: start: 20100412, end: 20100412
  2. FERAHEME [Suspect]
     Indication: IRON DEFICIENCY ANAEMIA
     Dosage: SEE IMAGE
     Route: 042
     Dates: start: 20100412, end: 20100412
  3. FERAHEME [Suspect]
     Indication: ANAEMIA OF CHRONIC DISEASE
     Dosage: SEE IMAGE
     Route: 042
     Dates: start: 20100416, end: 20100416
  4. FERAHEME [Suspect]
     Indication: IRON DEFICIENCY ANAEMIA
     Dosage: SEE IMAGE
     Route: 042
     Dates: start: 20100416, end: 20100416
  5. FERAHEME [Suspect]
     Dosage: 270 MG, SINGLE, INTRAVENOUS
     Route: 042
     Dates: start: 20100712, end: 20100712
  6. TRICOR (ADENOSINE) [Concomitant]
  7. SYNTHROID [Concomitant]
  8. ASPIRIN [Concomitant]
  9. CENTRUM (ASCORBIC ACID, BETACAROTENE, COLECALCIFEROL, FOLIC ACID, MINE [Concomitant]
  10. TEKTURNA [Concomitant]
  11. CRESTOR [Concomitant]
  12. LASIX [Concomitant]
  13. POTASSIUM CHLORIDE [Concomitant]
  14. TUMS (CALCIUM CARBONATE, MAGNESIUM CARBONATE, MAGNESIUM TRISILICATE) [Concomitant]
  15. TOPROL-XL [Concomitant]

REACTIONS (9)
  - CYANOSIS [None]
  - DIZZINESS [None]
  - GASTROINTESTINAL NECROSIS [None]
  - HYPOTENSION [None]
  - IMMOBILE [None]
  - OXYGEN SATURATION DECREASED [None]
  - STARING [None]
  - URINARY INCONTINENCE [None]
  - YAWNING [None]
